FAERS Safety Report 4349427-7 (Version None)
Quarter: 2004Q2

REPORT INFORMATION
  Report Type: 
  Country: None (occurrence: None)
  Receive Date: 20040428
  Receipt Date: 20040420
  Transmission Date: 20050107
  Serious: Yes (Other)
  Sender: FDA-Public Use
  Company Number: PHBS2004DK05379

PATIENT
  Age: 25 Year
  Sex: Male

DRUGS (9)
  1. LEPONEX [Suspect]
     Indication: SCHIZOPHRENIA
     Route: 048
     Dates: start: 20030716
  2. SEROQUEL [Suspect]
     Dosage: 800 MG, BID
     Dates: start: 20020531, end: 20040107
  3. ANTABUSE [Concomitant]
     Dosage: 400 MG, QW3
     Route: 065
     Dates: start: 20010101
  4. BUSPAR [Concomitant]
     Dosage: 10 MG, BID
     Route: 065
     Dates: start: 20030926
  5. ZOLOFT [Concomitant]
     Dosage: 100 MG, QD
     Route: 065
     Dates: start: 20030926
  6. OXAZEPAM [Concomitant]
     Dosage: 15 MG, QD
     Route: 065
     Dates: start: 20030902
  7. RISPERDAL [Concomitant]
     Dosage: 3 MG, BID
     Route: 065
     Dates: start: 20030708
  8. EGAZIL DURETTER [Concomitant]
     Dosage: .6 MG, BID
     Route: 065
     Dates: start: 20030813
  9. NOZINAN [Concomitant]
     Dosage: 50 MG, QD
     Route: 065
     Dates: start: 20030623

REACTIONS (2)
  - DRUG INTERACTION [None]
  - GRAND MAL CONVULSION [None]
